FAERS Safety Report 13326889 (Version 1)
Quarter: 2017Q1

REPORT INFORMATION
  Report Type: Spontaneous
  Country: CN (occurrence: CN)
  Receive Date: 20170312
  Receipt Date: 20170312
  Transmission Date: 20170428
  Serious: Yes (Hospitalization)
  Sender: FDA-Public Use
  Company Number: PHHY2017CN036593

PATIENT
  Age: 57 Year
  Sex: Male

DRUGS (1)
  1. VALSARTAN. [Suspect]
     Active Substance: VALSARTAN
     Indication: HYPERTENSION
     Dosage: 80 MG, QD
     Route: 065

REACTIONS (20)
  - Cold sweat [Unknown]
  - Fatigue [Unknown]
  - Sinus bradycardia [Unknown]
  - Loss of consciousness [Recovered/Resolved]
  - Atrial tachycardia [Unknown]
  - Chest discomfort [Recovered/Resolved]
  - Arrhythmia [Unknown]
  - Torsade de pointes [Unknown]
  - Cheilitis [Unknown]
  - Oral mucosal erythema [Unknown]
  - Palpitations [Recovering/Resolving]
  - Sinus arrest [Unknown]
  - Arteriosclerosis coronary artery [Unknown]
  - Ventricular tachycardia [Unknown]
  - Supraventricular extrasystoles [Unknown]
  - Hypertension [Unknown]
  - Chest discomfort [Unknown]
  - Syncope [Recovering/Resolving]
  - Peripheral coldness [Unknown]
  - Ventricular extrasystoles [Unknown]

NARRATIVE: CASE EVENT DATE: 201701
